FAERS Safety Report 4449770-7 (Version None)
Quarter: 2004Q3

REPORT INFORMATION
  Report Type: 
  Country: None (occurrence: None)
  Receive Date: 20040802
  Receipt Date: 20040426
  Transmission Date: 20050211
  Serious: Yes (Hospitalization)
  Sender: FDA-Public Use
  Company Number: US-SHR-04-024483

PATIENT
  Age: 30 Year
  Sex: Female

DRUGS (1)
  1. MAGNEVIST [Suspect]
     Indication: NUCLEAR MAGNETIC RESONANCE IMAGING
     Dosage: 20 MG 1 DOSE INTRAVENOUS
     Route: 042
     Dates: start: 20040412, end: 20040412

REACTIONS (2)
  - ANAPHYLACTIC REACTION [None]
  - URTICARIA GENERALISED [None]
